FAERS Safety Report 25107285 (Version 4)
Quarter: 2025Q2

REPORT INFORMATION
  Report Type: Spontaneous
  Country: DK (occurrence: DK)
  Receive Date: 20250321
  Receipt Date: 20250429
  Transmission Date: 20250717
  Serious: Yes (Life-Threatening, Hospitalization, Other)
  Sender: SANDOZ
  Company Number: DK-SANDOZ-SDZ2025DK011422

PATIENT
  Sex: Male

DRUGS (1)
  1. ALLOPURINOL [Suspect]
     Active Substance: ALLOPURINOL
     Indication: Arthritis
     Route: 065

REACTIONS (6)
  - Toxic epidermal necrolysis [Unknown]
  - Skin injury [Unknown]
  - Limb injury [Unknown]
  - Tooth injury [Unknown]
  - Pyrexia [Unknown]
  - Product use in unapproved indication [Unknown]
